FAERS Safety Report 6732085-1 (Version None)
Quarter: 2010Q2

REPORT INFORMATION
  Report Type: 
  Country: None (occurrence: None)
  Receive Date: 20100519
  Receipt Date: 20100510
  Transmission Date: 20101027
  Serious: Yes (Other)
  Sender: FDA-Public Use
  Company Number: US-ASTRAZENECA-2010SE12065

PATIENT
  Sex: Male
  Weight: 66.7 kg

DRUGS (3)
  1. CRESTOR [Suspect]
     Indication: BLOOD CHOLESTEROL
     Dosage: 5 MG 1/2 PILL DAILY
     Route: 048
     Dates: start: 20100225
  2. ATENOLOL [Concomitant]
     Indication: BLOOD PRESSURE
  3. TRIAMDERENE [Concomitant]
     Indication: BLOOD PRESSURE

REACTIONS (3)
  - ABDOMINAL DISCOMFORT [None]
  - MYOCARDIAL INFARCTION [None]
  - THROAT IRRITATION [None]
